FAERS Safety Report 24424464 (Version 1)
Quarter: 2024Q4

REPORT INFORMATION
  Report Type: Spontaneous
  Country: CN (occurrence: CN)
  Receive Date: 20241010
  Receipt Date: 20241010
  Transmission Date: 20250114
  Serious: Yes (Hospitalization)
  Sender: ELI LILLY AND CO
  Company Number: CN-Merck Healthcare KGaA-2024052212

PATIENT
  Age: 66 Year
  Sex: Male
  Weight: 63 kg

DRUGS (4)
  1. ERBITUX [Suspect]
     Active Substance: CETUXIMAB
     Indication: Hypopharyngeal cancer
     Dosage: 300 MG, UNKNOWN
     Route: 041
     Dates: start: 20240903, end: 20240903
  2. GEMCITABINE HYDROCHLORIDE [Suspect]
     Active Substance: GEMCITABINE HYDROCHLORIDE
     Indication: Hypopharyngeal cancer
     Dosage: 200 MG, UNKNOWN
     Route: 041
     Dates: start: 20240904, end: 20240904
  3. PACLITAXEL [Suspect]
     Active Substance: PACLITAXEL
     Indication: Hypopharyngeal cancer
     Dosage: 180 MG, UNKNOWN
     Route: 041
     Dates: start: 20240903, end: 20240904
  4. CISPLATIN [Suspect]
     Active Substance: CISPLATIN
     Indication: Hypopharyngeal cancer
     Dosage: 37 MG, UNKNOWN
     Route: 041
     Dates: start: 20240904, end: 20240907

REACTIONS (1)
  - Myelosuppression [Recovering/Resolving]

NARRATIVE: CASE EVENT DATE: 20240910
